FAERS Safety Report 4367825-2 (Version None)
Quarter: 2004Q2

REPORT INFORMATION
  Report Type: 
  Country: None (occurrence: None)
  Receive Date: 20040527
  Receipt Date: 20031106
  Transmission Date: 20050107
  Serious: Yes (Life-Threatening)
  Sender: FDA-Public Use
  Company Number: ZONI001253

PATIENT
  Age: 30 Year
  Sex: Female

DRUGS (3)
  1. ZONEGRAN [Suspect]
     Indication: BULIMIA NERVOSA
     Dosage: 100 MG DAILY ORAL
     Route: 048
     Dates: start: 20030801, end: 20030801
  2. EFFEXOR [Concomitant]
  3. PROVIGIL [Concomitant]

REACTIONS (1)
  - INTENTIONAL OVERDOSE [None]
